FAERS Safety Report 6682292-1 (Version None)
Quarter: 2010Q2

REPORT INFORMATION
  Report Type: 
  Country: None (occurrence: None)
  Receive Date: 20100414
  Receipt Date: 20100414
  Transmission Date: 20101027
  Serious: Yes (Other)
  Sender: FDA-Public Use
  Company Number: None

PATIENT
  Sex: Female
  Weight: 81.6 kg

DRUGS (7)
  1. XOLAIR [Suspect]
     Indication: ASTHMA
     Dosage: XOLAIR S.Q. 150 MG = 1ML ONE S.Q.
     Route: 058
     Dates: start: 20050402
  2. XOLAIR [Suspect]
     Dosage: XOLAIR 75MG = 0.5 ML ONE TREATMENT EVERY 2 TO 3 WKS
     Dates: start: 20071204, end: 20100212
  3. ALBUTEROL [Concomitant]
  4. IPRATROPIUM [Concomitant]
  5. PROAIR HFA [Concomitant]
  6. FLOVENT [Concomitant]
  7. SEREVENT [Concomitant]

REACTIONS (4)
  - ARTHRALGIA [None]
  - CHEST PAIN [None]
  - DIABETES MELLITUS [None]
  - PAIN IN EXTREMITY [None]
